FAERS Safety Report 9465855 (Version 1)
Quarter: 2013Q3

REPORT INFORMATION
  Report Type: Spontaneous
  Country: US (occurrence: US)
  Receive Date: 20130820
  Receipt Date: 20130820
  Transmission Date: 20140515
  Serious: Yes (Other)
  Sender: FDA-Public Use
  Company Number: US-PFIZER INC-2013238922

PATIENT
  Age: 58 Year
  Sex: Male
  Weight: 73.92 kg

DRUGS (2)
  1. VIAGRA [Suspect]
     Dosage: 50 MG, AS NEEDED
  2. NITROGLYCERIN [Interacting]
     Dosage: UNK

REACTIONS (3)
  - Blood pressure increased [Recovered/Resolved]
  - Drug effect incomplete [Unknown]
  - Labelled drug-drug interaction medication error [Unknown]
